FAERS Safety Report 19048359 (Version 2)
Quarter: 2021Q2

REPORT INFORMATION
  Report Type: Spontaneous
  Country: US (occurrence: US)
  Receive Date: 20210324
  Receipt Date: 20210407
  Transmission Date: 20210717
  Serious: Yes (Hospitalization)
  Sender: FDA-Public Use
  Company Number: US-ROCHE-2794134

PATIENT
  Age: 68 Year
  Sex: Male

DRUGS (2)
  1. ESBRIET [Suspect]
     Active Substance: PIRFENIDONE
     Indication: IDIOPATHIC PULMONARY FIBROSIS
     Dosage: ON HOLD
     Route: 048
     Dates: start: 202012
  2. ESBRIET [Suspect]
     Active Substance: PIRFENIDONE
     Indication: IDIOPATHIC PULMONARY FIBROSIS
     Dosage: 534 MG EACH MORNING EACH EVENING 801 MG IN AFTERNOON
     Route: 048
     Dates: start: 202011, end: 20210315

REACTIONS (5)
  - Hepatic enzyme increased [Recovered/Resolved]
  - Sepsis [Unknown]
  - Kidney infection [Recovered/Resolved]
  - Off label use [Unknown]
  - Bacterial infection [Recovered/Resolved]

NARRATIVE: CASE EVENT DATE: 20210303
